FAERS Safety Report 5025249-9 (Version None)
Quarter: 2006Q2

REPORT INFORMATION
  Report Type: 
  Country: None (occurrence: None)
  Receive Date: 20060426
  Receipt Date: 20060202
  Transmission Date: 20061013
  Serious: Yes (Other)
  Sender: FDA-Public Use
  Company Number: 2006016777

PATIENT
  Age: 60 Year
  Sex: Male

DRUGS (4)
  1. LYRICA [Suspect]
     Indication: DIABETIC NEUROPATHY
     Dosage: 150 MG (50 MG,3 IN 1D),ORAL
     Route: 048
     Dates: start: 20060102
  2. OXYBUTYNIN CHLORIDE [Suspect]
     Indication: BLADDER DISORDER
     Dosage: (3.9 MG,2 IN 1 WK), TRANSDERMAL
     Route: 062
     Dates: start: 20060102
  3. OXYBUTYNIN CHLORIDE [Suspect]
     Indication: URINE FLOW DECREASED
     Dosage: (3.9 MG,2 IN 1 WK), TRANSDERMAL
     Route: 062
     Dates: start: 20060102
  4. ALL OTHER THERAPEUTIC PRODUCTS (ALL OTHER THERAPEUTIC PRODUCTS) [Concomitant]

REACTIONS (3)
  - DRY MOUTH [None]
  - PRODUCTIVE COUGH [None]
  - VISION BLURRED [None]
